FAERS Safety Report 8496593-8 (Version None)
Quarter: 2012Q3

REPORT INFORMATION
  Report Type: 
  Country: None (occurrence: None)
  Receive Date: 20120709
  Receipt Date: 20120702
  Transmission Date: 20120928
  Serious: Yes (Hospitalization, Other)
  Sender: FDA-Public Use
  Company Number: US-AMGEN-USASP2012041320

PATIENT
  Sex: Male

DRUGS (1)
  1. PROCRIT [Suspect]
     Indication: NEPHROPATHY
     Dosage: UNK

REACTIONS (3)
  - DEMENTIA [None]
  - HOSPITALISATION [None]
  - IMMOBILE [None]
